FAERS Safety Report 25527420 (Version 1)
Quarter: 2025Q3

REPORT INFORMATION
  Report Type: Report from Study
  Country: CA (occurrence: CA)
  Receive Date: 20250708
  Receipt Date: 20250708
  Transmission Date: 20251020
  Serious: Yes (Hospitalization)
  Sender: TAKEDA
  Company Number: CA-TAKEDA-2025TUS060945

PATIENT
  Sex: Male

DRUGS (8)
  1. HUMAN IMMUNOGLOBULIN G [Suspect]
     Active Substance: HUMAN IMMUNOGLOBULIN G
     Indication: Secondary immunodeficiency
     Dosage: 4 GRAM, 1/WEEK
     Dates: start: 20241119
  2. GAMMAGARD LIQUID [Suspect]
     Active Substance: HUMAN IMMUNOGLOBULIN G
     Indication: Product used for unknown indication
  3. ZANUBRUTINIB [Suspect]
     Active Substance: ZANUBRUTINIB
     Indication: Product used for unknown indication
     Dosage: 80 MILLIGRAM, BID
  4. FINASTERIDE [Concomitant]
     Active Substance: FINASTERIDE
  5. TAMSULOSIN [Concomitant]
     Active Substance: TAMSULOSIN
  6. FUROSEMIDE [Concomitant]
     Active Substance: FUROSEMIDE
  7. ALLOPURINOL [Concomitant]
     Active Substance: ALLOPURINOL
  8. VALACYCLOVIR [Concomitant]
     Active Substance: VALACYCLOVIR HYDROCHLORIDE

REACTIONS (1)
  - Herpes zoster [Unknown]
